FAERS Safety Report 6127293-7 (Version None)
Quarter: 2009Q1

REPORT INFORMATION
  Report Type: 
  Country: None (occurrence: None)
  Receive Date: 20090319
  Receipt Date: 20090316
  Transmission Date: 20090719
  Serious: Yes (Hospitalization)
  Sender: FDA-Public Use
  Company Number: TRP_06132_2009

PATIENT
  Age: 53 Year
  Sex: Male

DRUGS (2)
  1. RIBASPHERE [Suspect]
     Indication: HEPATITIS C
     Dosage: DF,
     Dates: start: 20081112
  2. PEG-INTRON [Suspect]
     Indication: HEPATITIS C
     Dosage: DF, SUBCUTANEOUS
     Route: 058
     Dates: start: 20081112

REACTIONS (3)
  - ANGER [None]
  - DEPRESSION [None]
  - OESOPHAGEAL ULCER [None]
